FAERS Safety Report 17632841 (Version 1)
Quarter: 2020Q2

REPORT INFORMATION
  Report Type: Spontaneous
  Country: US (occurrence: US)
  Receive Date: 20200406
  Receipt Date: 20200406
  Transmission Date: 20200713
  Serious: No
  Sender: FDA-Public Use
  Company Number: US-SA-2020SA085400

PATIENT
  Sex: Female

DRUGS (24)
  1. DUREZOL [Concomitant]
     Active Substance: DIFLUPREDNATE
  2. CLONIDINE HCL [Concomitant]
     Active Substance: CLONIDINE HYDROCHLORIDE
  3. CYMBALTA [Concomitant]
     Active Substance: DULOXETINE HYDROCHLORIDE
  4. AMLODIPINE BESYLATE. [Concomitant]
     Active Substance: AMLODIPINE BESYLATE
  5. LEVOTHYROXINE SODIUM. [Concomitant]
     Active Substance: LEVOTHYROXINE SODIUM
  6. CITALOPRAM HYDROBROMIDE. [Concomitant]
     Active Substance: CITALOPRAM HYDROBROMIDE
  7. NIFEDIPINE (II) [Concomitant]
  8. OMEPRAZOLE. [Concomitant]
     Active Substance: OMEPRAZOLE
  9. TEGRETOL [Concomitant]
     Active Substance: CARBAMAZEPINE
  10. AZOPT [Concomitant]
     Active Substance: BRINZOLAMIDE
  11. QUETIAPINE FUMARATE. [Concomitant]
     Active Substance: QUETIAPINE FUMARATE
  12. PRAVASTATIN SODIUM. [Concomitant]
     Active Substance: PRAVASTATIN SODIUM
  13. TRAZODONE HYDROCHLORIDE. [Concomitant]
     Active Substance: TRAZODONE HYDROCHLORIDE
  14. POTASSIUM CHLORIDE [POTASSIUM CHLORIDE;RIBOFLAVIN SODIUM PHOSPHATE] [Concomitant]
  15. ENABLEX [Concomitant]
     Active Substance: DARIFENACIN HYDROBROMIDE
  16. METHYLPRED [Concomitant]
     Active Substance: METHYLPREDNISOLONE
  17. ASPIRIN [ACETYLSALICYLIC ACID] [Concomitant]
     Active Substance: ASPIRIN
  18. RANITIDINE HCL [Concomitant]
     Active Substance: RANITIDINE HYDROCHLORIDE
  19. MYRBETRIQ [Concomitant]
     Active Substance: MIRABEGRON
  20. GABAPENTIN. [Concomitant]
     Active Substance: GABAPENTIN
  21. FUROSEMIDE. [Concomitant]
     Active Substance: FUROSEMIDE
  22. AUBAGIO [Suspect]
     Active Substance: TERIFLUNOMIDE
     Indication: PRODUCT USED FOR UNKNOWN INDICATION
     Dosage: 14 MG, QD
     Route: 048
  23. TIMOLOL MALEATE EX [Concomitant]
     Active Substance: TIMOLOL MALEATE
  24. COMBIGAN [Concomitant]
     Active Substance: BRIMONIDINE TARTRATE\TIMOLOL MALEATE

REACTIONS (1)
  - Hyperhidrosis [Unknown]
